FAERS Safety Report 7759547-2 (Version None)
Quarter: 2011Q3

REPORT INFORMATION
  Report Type: 
  Country: None (occurrence: None)
  Receive Date: 20110919
  Receipt Date: 20110909
  Transmission Date: 20111222
  Serious: Yes (Death, Hospitalization)
  Sender: FDA-Public Use
  Company Number: US-CELGENEUS-163-21880-11082848

PATIENT
  Sex: Female
  Weight: 153.91 kg

DRUGS (42)
  1. FLUTICASONE PROPIONATE [Concomitant]
     Dosage: 50 MICROGRAM
     Route: 065
  2. FISH OIL [Concomitant]
     Dosage: 300 MILLIGRAM
     Route: 048
  3. NITROGLYCERIN [Concomitant]
     Dosage: .4 MILLIGRAM
     Route: 065
  4. RED BLOOD CELLS [Concomitant]
     Dosage: 2 UNITS
     Route: 041
     Dates: start: 20110518, end: 20110518
  5. LOTRISONE [Concomitant]
     Indication: RASH
     Route: 061
     Dates: start: 20110501
  6. NEUPOGEN [Concomitant]
     Indication: NEUTROPENIA
     Dosage: 480 MICROGRAM
     Route: 065
     Dates: start: 20110501
  7. REVLIMID [Suspect]
     Indication: MULTIPLE MYELOMA
     Dosage: 12.5 MILLIGRAM
     Route: 048
     Dates: start: 20110318, end: 20110101
  8. OXYGEN [Concomitant]
     Route: 055
     Dates: start: 20110501
  9. VALSARTAN [Concomitant]
     Dosage: 80 MILLIGRAM
     Route: 065
  10. PRAMIPEXOLE DIHYDROCHLORIDE [Concomitant]
     Dosage: .25 MILLIGRAM
     Route: 065
  11. RED BLOOD CELLS [Concomitant]
     Dosage: 2 UNITS
     Route: 041
     Dates: start: 20110504, end: 20110504
  12. MONTELUKAST SODIUM [Concomitant]
     Dosage: 10 MILLIGRAM
     Route: 065
  13. GUAIFENESIN [Concomitant]
     Dosage: 600 MILLIGRAM
     Route: 048
  14. ACETAMINOPHEN [Concomitant]
     Dosage: 325 MILLIGRAM
     Route: 065
  15. LEVALBUTEROL HCL [Concomitant]
     Dosage: 1.25 MILLIGRAM
     Route: 065
  16. WHITE PETROLATUM-MINERAL OIL [Concomitant]
     Route: 065
  17. MELPHALAN HYDROCHLORIDE [Concomitant]
     Route: 065
     Dates: start: 20110101
  18. PREDNISONE [Concomitant]
     Route: 065
     Dates: start: 20110101
  19. BUMETANIDE [Concomitant]
     Dosage: 2 MILLIGRAM
     Route: 065
  20. CARVEDILOL [Concomitant]
     Dosage: 12.5 MILLIGRAM
     Route: 065
  21. ISOSORBIDE DINITRATE [Concomitant]
     Dosage: 40 MILLIGRAM
     Route: 065
  22. MAGNESIUM HYDROXIDE [Concomitant]
     Dosage: 8 PERCENT
     Route: 048
  23. VELCADE [Concomitant]
     Route: 065
  24. LEVOTHYROXINE SODIUM [Concomitant]
     Dosage: 137 MICROGRAM
     Route: 065
  25. TIOTROPIUM [Concomitant]
     Dosage: 18 MICROGRAM
     Route: 055
  26. PRESSORS [Concomitant]
     Route: 065
  27. CALCITONIN SALMON [Concomitant]
     Dosage: 200 UNITS
     Route: 045
  28. MAGNESIUM [Concomitant]
     Dosage: 64 MILLIGRAM
     Route: 048
  29. COQ10 [Concomitant]
     Dosage: 100 MILLIGRAM
     Route: 048
  30. RISEDRONATE SODIUM [Concomitant]
     Dosage: 35 MILLIGRAM
     Route: 065
  31. ASPIRIN [Concomitant]
     Dosage: 325 MILLIGRAM
     Route: 065
  32. INSULIN DETEMIR [Concomitant]
     Dosage: 100 UNITS
     Route: 065
  33. VITAMIN D [Concomitant]
     Dosage: 4000 UNITS
     Route: 048
  34. MULTI-VITAMINS [Concomitant]
     Route: 048
  35. OMEPRAZOLE MAGNESIUM [Concomitant]
     Dosage: 20 MILLIGRAM
     Route: 048
  36. FLUCONAZOLE [Concomitant]
     Dosage: 200 MILLIGRAM
     Route: 048
  37. ZOLPIDEM [Concomitant]
     Dosage: 5 MILLIGRAM
     Route: 048
  38. FLUTICASONE PROPIONATE/SALMETEROL [Concomitant]
     Dosage: 500 MICROGRAM
     Route: 065
  39. CITALOPRAM HYDROBROMIDE [Concomitant]
     Dosage: 40 MILLIGRAM
     Route: 065
  40. SPIRONOLACTONE [Concomitant]
     Dosage: 25 MILLIGRAM
     Route: 048
  41. MELATONIN [Concomitant]
     Dosage: 3 MILLIGRAM
     Route: 048
  42. GABAPENTIN [Concomitant]
     Dosage: 300 MILLIGRAM
     Route: 048

REACTIONS (29)
  - SEPTIC SHOCK [None]
  - PCO2 INCREASED [None]
  - BLOOD BICARBONATE INCREASED [None]
  - FATIGUE [None]
  - PSORIASIS [None]
  - CHRONIC OBSTRUCTIVE PULMONARY DISEASE [None]
  - BRAIN NATRIURETIC PEPTIDE INCREASED [None]
  - OXYGEN SATURATION DECREASED [None]
  - BLOOD SODIUM DECREASED [None]
  - PROTHROMBIN TIME PROLONGED [None]
  - BLOOD CALCIUM DECREASED [None]
  - BLOOD PH DECREASED [None]
  - OEDEMA PERIPHERAL [None]
  - RENAL FAILURE CHRONIC [None]
  - PANCYTOPENIA [None]
  - BLOOD CHLORIDE DECREASED [None]
  - CONDITION AGGRAVATED [None]
  - CANDIDIASIS [None]
  - CITROBACTER TEST POSITIVE [None]
  - RASH [None]
  - CARDIAC FAILURE CONGESTIVE [None]
  - PO2 DECREASED [None]
  - BLOOD GLUCOSE INCREASED [None]
  - DYSPNOEA [None]
  - CELLULITIS [None]
  - PNEUMONIA [None]
  - BACTERIAL TEST POSITIVE [None]
  - CARBON DIOXIDE INCREASED [None]
  - HYPERKALAEMIA [None]
